FAERS Safety Report 7552363-6 (Version None)
Quarter: 2011Q2

REPORT INFORMATION
  Report Type: 
  Country: None (occurrence: None)
  Receive Date: 20110616
  Receipt Date: 20081117
  Transmission Date: 20111010
  Serious: Yes (Death)
  Sender: FDA-Public Use
  Company Number: PHHY2008US08495

PATIENT
  Sex: Male
  Weight: 83 kg

DRUGS (2)
  1. EXJADE [Suspect]
     Indication: HAEMOCHROMATOSIS
     Dosage: 1500 UNK, QD
     Route: 048
     Dates: start: 20080117, end: 20080101
  2. DRUG THERAPY NOS [Concomitant]
     Indication: IRON OVERLOAD

REACTIONS (4)
  - PYREXIA [None]
  - DEATH [None]
  - RESPIRATORY FAILURE [None]
  - HAEMOPTYSIS [None]
